FAERS Safety Report 7943473-X (Version None)
Quarter: 2011Q4

REPORT INFORMATION
  Report Type: 
  Country: None (occurrence: None)
  Receive Date: 20111122
  Receipt Date: 20110706
  Transmission Date: 20120403
  Serious: No
  Sender: FDA-Public Use
  Company Number: PHHY2011US60513

PATIENT
  Age: 56 Year
  Sex: Female

DRUGS (9)
  1. ZOCOR [Concomitant]
  2. NEURONTIN [Concomitant]
  3. NEXIUM (ESOMEPRAZOLE MAGNESIUM) CAPSULE [Concomitant]
  4. PROVIGIL [Concomitant]
  5. CALCIUM D (CALCIUM, COLECALCIFEROL) TABLET [Concomitant]
  6. CYMBALTA [Concomitant]
  7. BACLOFEN [Concomitant]
  8. GILENYA [Suspect]
     Dosage: 0.5 MG, UNK, ORAL
     Route: 048
  9. ASPIRIN [Concomitant]

REACTIONS (3)
  - NEURALGIA [None]
  - MUSCLE SPASMS [None]
  - HEADACHE [None]
